FAERS Safety Report 7065804-8 (Version None)
Quarter: 2010Q4

REPORT INFORMATION
  Report Type: 
  Country: None (occurrence: None)
  Receive Date: 20101027
  Receipt Date: 20101018
  Transmission Date: 20110411
  Serious: Yes (Other)
  Sender: FDA-Public Use
  Company Number: IL-ABBOTT-10P-082-0679123-00

PATIENT
  Age: 40 Year
  Sex: Female
  Weight: 90 kg

DRUGS (1)
  1. REDUCTIL 15MG [Suspect]
     Indication: OBESITY
     Route: 048

REACTIONS (4)
  - BLOOD IRON DECREASED [None]
  - DIPLOPIA [None]
  - EYELID PTOSIS [None]
  - VITAMIN B12 DECREASED [None]
